FAERS Safety Report 18289888 (Version 1)
Quarter: 2020Q3

REPORT INFORMATION
  Report Type: Spontaneous
  Country: US (occurrence: US)
  Receive Date: 20200921
  Receipt Date: 20200921
  Transmission Date: 20201103
  Serious: No
  Sender: FDA-Public Use
  Company Number: US-BRAINTREE LABORATORIES-200033

PATIENT
  Age: 63 Year
  Sex: Female
  Weight: 65.77 kg

DRUGS (1)
  1. SUPREP BOWEL PREP [Suspect]
     Active Substance: MAGNESIUM SULFATE\POTASSIUM SULFATE\SODIUM SULFATE
     Indication: COLONOSCOPY
     Dosage: ~0.5 X 6OZ.BOTTLE
     Route: 048
     Dates: start: 20200115, end: 20200115

REACTIONS (3)
  - Tremor [None]
  - Wrong technique in product usage process [None]
  - Erythema [None]

NARRATIVE: CASE EVENT DATE: 20200115
